FAERS Safety Report 21830586 (Version 2)
Quarter: 2023Q1

REPORT INFORMATION
  Report Type: Spontaneous
  Country: DE (occurrence: DE)
  Receive Date: 20230106
  Receipt Date: 20230119
  Transmission Date: 20230418
  Serious: No
  Sender: FDA-Public Use
  Company Number: DE-ROCHE-3252268

PATIENT
  Age: 8 Decade
  Sex: Male

DRUGS (4)
  1. RITUXIMAB [Suspect]
     Active Substance: RITUXIMAB
     Indication: Waldenstrom^s macroglobulinaemia
     Dosage: WITH BENDAMUSTINE
     Route: 065
  2. BENDAMUSTINE [Suspect]
     Active Substance: BENDAMUSTINE
     Indication: Waldenstrom^s macroglobulinaemia
     Dosage: WITH RITUXIMAB
     Route: 065
  3. IBRUTINIB [Concomitant]
     Active Substance: IBRUTINIB
     Dosage: UNKNOWN
  4. ZANUBRUTINIB [Concomitant]
     Active Substance: ZANUBRUTINIB
     Dosage: UNKNOWN

REACTIONS (2)
  - Neoplasm progression [Unknown]
  - Off label use [Unknown]
